FAERS Safety Report 11729221 (Version 5)
Quarter: 2016Q1

REPORT INFORMATION
  Report Type: Spontaneous
  Country: US (occurrence: None)
  Receive Date: 20151112
  Receipt Date: 20160114
  Transmission Date: 20160525
  Serious: Yes (Life-Threatening, Hospitalization, Other)
  Sender: FDA-Public Use
  Company Number: US-MDT-ADR-2015-02145

PATIENT
  Age: 39 Year
  Sex: Female

DRUGS (2)
  1. PROTONIX [Suspect]
     Active Substance: PANTOPRAZOLE SODIUM
  2. BACLOFEN INTRATHECAL - 2000 MCG/ML [Suspect]
     Active Substance: BACLOFEN
     Indication: MUSCLE SPASTICITY
     Dosage: 1511.8 MCG/DAY

REACTIONS (9)
  - Meningitis bacterial [None]
  - Medical device site erythema [None]
  - CSF protein increased [None]
  - CSF glucose decreased [None]
  - CSF neutrophil count increased [None]
  - Wound dehiscence [None]
  - Body temperature increased [None]
  - Mental status changes [None]
  - Implant site infection [None]
